FAERS Safety Report 13732311 (Version 1)
Quarter: 2017Q3

REPORT INFORMATION
  Report Type: Spontaneous
  Country: US (occurrence: US)
  Receive Date: 20170707
  Receipt Date: 20170707
  Transmission Date: 20171127
  Serious: No
  Sender: FDA-Public Use
  Company Number: US-SA-2017SA068750

PATIENT
  Age: 64 Year
  Sex: Male

DRUGS (4)
  1. SAR231893 [Suspect]
     Active Substance: DUPILUMAB
     Indication: DERMATITIS CONTACT
     Route: 058
     Dates: start: 20170412
  2. SAR231893 [Suspect]
     Active Substance: DUPILUMAB
     Indication: DERMATITIS CONTACT
     Dosage: EVERY OTHER WEEK
     Route: 065
     Dates: start: 20170426
  3. PREDNISONE. [Concomitant]
     Active Substance: PREDNISONE
     Dates: start: 201608
  4. CYCLOSPORINE. [Concomitant]
     Active Substance: CYCLOSPORINE
     Dates: start: 2017

REACTIONS (3)
  - Nausea [Not Recovered/Not Resolved]
  - Injection site bruising [Not Recovered/Not Resolved]
  - Dyspepsia [Not Recovered/Not Resolved]

NARRATIVE: CASE EVENT DATE: 20170413
